FAERS Safety Report 8788110 (Version 1)
Quarter: 2012Q4

REPORT INFORMATION
  Report Type: 
  Country: US (occurrence: US)
  Receive Date: 20120914
  Receipt Date: 20120914
  Transmission Date: 20130627
  Serious: Yes (Other)
  Sender: FDA-Public Use
  Company Number: PHEH2012US017546

PATIENT
  Sex: Female

DRUGS (4)
  1. DIOVAN HCT [Suspect]
     Indication: BLOOD PRESSURE
     Dosage: 1 DF, QD
     Route: 048
  2. METFORMIN [Concomitant]
  3. STRATTERA [Concomitant]
  4. TRILIPIX [Concomitant]

REACTIONS (1)
  - Diabetes mellitus [Unknown]
